FAERS Safety Report 25633591 (Version 4)
Quarter: 2025Q3

REPORT INFORMATION
  Report Type: Report from Study
  Country: EU (occurrence: EU)
  Receive Date: 20250801
  Receipt Date: 20250924
  Transmission Date: 20251021
  Serious: Yes (Life-Threatening, Hospitalization, Other)
  Sender: PFIZER
  Company Number: EU-AUROBINDO-AUR-APL-2025-033081

PATIENT
  Age: 47 Year
  Sex: Male

DRUGS (83)
  1. DOXORUBICIN HYDROCHLORIDE [Suspect]
     Active Substance: DOXORUBICIN HYDROCHLORIDE
     Indication: Angioimmunoblastic T-cell lymphoma
     Route: 065
     Dates: start: 20250616, end: 20250616
  2. DOXORUBICIN HYDROCHLORIDE [Suspect]
     Active Substance: DOXORUBICIN HYDROCHLORIDE
     Indication: Peripheral T-cell lymphoma unspecified stage IV
     Route: 042
     Dates: start: 20250616, end: 20250620
  3. DOXORUBICIN HYDROCHLORIDE [Suspect]
     Active Substance: DOXORUBICIN HYDROCHLORIDE
     Route: 065
     Dates: start: 20250707, end: 20250707
  4. DOXORUBICIN HYDROCHLORIDE [Suspect]
     Active Substance: DOXORUBICIN HYDROCHLORIDE
     Route: 065
     Dates: start: 20250728, end: 20250728
  5. DOXORUBICIN HYDROCHLORIDE [Suspect]
     Active Substance: DOXORUBICIN HYDROCHLORIDE
     Route: 065
     Dates: start: 20250818, end: 20250818
  6. VINCRISTINE [Suspect]
     Active Substance: VINCRISTINE
     Indication: Peripheral T-cell lymphoma unspecified stage IV
     Route: 042
     Dates: start: 20250616, end: 20250620
  7. BELINOSTAT [Suspect]
     Active Substance: BELINOSTAT
     Indication: Angioimmunoblastic T-cell lymphoma
     Route: 065
     Dates: start: 20250616, end: 20250616
  8. BELINOSTAT [Suspect]
     Active Substance: BELINOSTAT
     Indication: Peripheral T-cell lymphoma unspecified stage IV
     Route: 065
     Dates: start: 20250617, end: 20250617
  9. BELINOSTAT [Suspect]
     Active Substance: BELINOSTAT
     Route: 065
     Dates: start: 20250618, end: 20250618
  10. BELINOSTAT [Suspect]
     Active Substance: BELINOSTAT
     Route: 065
     Dates: start: 20250619, end: 20250619
  11. BELINOSTAT [Suspect]
     Active Substance: BELINOSTAT
     Route: 065
     Dates: start: 20250620, end: 20250620
  12. BELINOSTAT [Suspect]
     Active Substance: BELINOSTAT
     Route: 065
     Dates: start: 20250707, end: 20250707
  13. BELINOSTAT [Suspect]
     Active Substance: BELINOSTAT
     Route: 065
     Dates: start: 20250708, end: 20250708
  14. BELINOSTAT [Suspect]
     Active Substance: BELINOSTAT
     Route: 065
     Dates: start: 20250709, end: 20250709
  15. BELINOSTAT [Suspect]
     Active Substance: BELINOSTAT
     Route: 065
     Dates: start: 20250710, end: 20250710
  16. BELINOSTAT [Suspect]
     Active Substance: BELINOSTAT
     Route: 065
     Dates: start: 20250711, end: 20250711
  17. BELINOSTAT [Suspect]
     Active Substance: BELINOSTAT
     Route: 065
     Dates: start: 20250728, end: 20250728
  18. BELINOSTAT [Suspect]
     Active Substance: BELINOSTAT
     Route: 065
     Dates: start: 20250729, end: 20250729
  19. BELINOSTAT [Suspect]
     Active Substance: BELINOSTAT
     Route: 065
     Dates: start: 20250730, end: 20250730
  20. BELINOSTAT [Suspect]
     Active Substance: BELINOSTAT
     Route: 065
     Dates: start: 20250731, end: 20250731
  21. BELINOSTAT [Suspect]
     Active Substance: BELINOSTAT
     Route: 065
     Dates: start: 20250801, end: 20250801
  22. BELINOSTAT [Suspect]
     Active Substance: BELINOSTAT
     Route: 065
     Dates: start: 20250818, end: 20250818
  23. BELINOSTAT [Suspect]
     Active Substance: BELINOSTAT
     Route: 065
     Dates: start: 20250819, end: 20250819
  24. BELINOSTAT [Suspect]
     Active Substance: BELINOSTAT
     Route: 065
     Dates: start: 20250820, end: 20250820
  25. BELINOSTAT [Suspect]
     Active Substance: BELINOSTAT
     Route: 065
     Dates: start: 20250821, end: 20250821
  26. BELINOSTAT [Suspect]
     Active Substance: BELINOSTAT
     Route: 065
     Dates: start: 20250822, end: 20250822
  27. CYCLOPHOSPHAMIDE [Suspect]
     Active Substance: CYCLOPHOSPHAMIDE
     Indication: Angioimmunoblastic T-cell lymphoma
     Route: 065
     Dates: start: 20250616, end: 20250616
  28. CYCLOPHOSPHAMIDE [Suspect]
     Active Substance: CYCLOPHOSPHAMIDE
     Indication: Peripheral T-cell lymphoma unspecified stage IV
     Route: 042
     Dates: start: 20250616, end: 20250620
  29. CYCLOPHOSPHAMIDE [Suspect]
     Active Substance: CYCLOPHOSPHAMIDE
     Route: 065
     Dates: start: 20250707, end: 20250707
  30. CYCLOPHOSPHAMIDE [Suspect]
     Active Substance: CYCLOPHOSPHAMIDE
     Route: 065
     Dates: start: 20250728, end: 20250728
  31. CYCLOPHOSPHAMIDE [Suspect]
     Active Substance: CYCLOPHOSPHAMIDE
     Route: 065
     Dates: start: 20250818, end: 20250818
  32. ONCOVIN [Suspect]
     Active Substance: VINCRISTINE SULFATE
     Indication: Angioimmunoblastic T-cell lymphoma
     Route: 065
     Dates: start: 20250616, end: 20250616
  33. ONCOVIN [Suspect]
     Active Substance: VINCRISTINE SULFATE
     Route: 065
     Dates: start: 20250707, end: 20250707
  34. ONCOVIN [Suspect]
     Active Substance: VINCRISTINE SULFATE
     Route: 065
     Dates: start: 20250728, end: 20250728
  35. ONCOVIN [Suspect]
     Active Substance: VINCRISTINE SULFATE
     Route: 065
     Dates: start: 20250818, end: 20250818
  36. PREDNISONE [Suspect]
     Active Substance: PREDNISONE
     Indication: Angioimmunoblastic T-cell lymphoma
     Route: 065
     Dates: start: 20250616
  37. PREDNISONE [Suspect]
     Active Substance: PREDNISONE
     Route: 065
     Dates: start: 20250617
  38. PREDNISONE [Suspect]
     Active Substance: PREDNISONE
     Route: 065
     Dates: start: 20250618
  39. PREDNISONE [Suspect]
     Active Substance: PREDNISONE
     Route: 065
     Dates: start: 20250619
  40. PREDNISONE [Suspect]
     Active Substance: PREDNISONE
     Route: 065
     Dates: start: 20250620
  41. PREDNISONE [Suspect]
     Active Substance: PREDNISONE
     Route: 065
     Dates: start: 20250707
  42. PREDNISONE [Suspect]
     Active Substance: PREDNISONE
     Route: 065
     Dates: start: 20250708
  43. PREDNISONE [Suspect]
     Active Substance: PREDNISONE
     Route: 065
     Dates: start: 20250709
  44. PREDNISONE [Suspect]
     Active Substance: PREDNISONE
     Route: 065
     Dates: start: 20250710
  45. PREDNISONE [Suspect]
     Active Substance: PREDNISONE
     Route: 065
     Dates: start: 20250711
  46. PREDNISONE [Suspect]
     Active Substance: PREDNISONE
     Route: 065
     Dates: start: 20250728
  47. PREDNISONE [Suspect]
     Active Substance: PREDNISONE
     Route: 065
     Dates: start: 20250729
  48. PREDNISONE [Suspect]
     Active Substance: PREDNISONE
     Route: 065
     Dates: start: 20250730
  49. PREDNISONE [Suspect]
     Active Substance: PREDNISONE
     Route: 065
     Dates: start: 20250731
  50. PREDNISONE [Suspect]
     Active Substance: PREDNISONE
     Route: 065
     Dates: start: 20250801
  51. PREDNISONE [Suspect]
     Active Substance: PREDNISONE
     Route: 065
     Dates: start: 20250818
  52. PREDNISONE [Suspect]
     Active Substance: PREDNISONE
     Route: 065
     Dates: start: 20250819
  53. PREDNISONE [Suspect]
     Active Substance: PREDNISONE
     Route: 065
     Dates: start: 20250820
  54. PREDNISONE [Suspect]
     Active Substance: PREDNISONE
     Route: 065
     Dates: start: 20250821
  55. PREDNISONE [Suspect]
     Active Substance: PREDNISONE
     Route: 065
     Dates: start: 20250822
  56. PREDNISONE [Concomitant]
     Active Substance: PREDNISONE
     Indication: Pyrexia
     Dosage: 2.5 MILLIGRAM, ONCE A DAY
     Route: 048
     Dates: start: 2025, end: 20250529
  57. PREDNISONE [Concomitant]
     Active Substance: PREDNISONE
     Indication: Peripheral T-cell lymphoma unspecified stage IV
     Dosage: 2.5 MILLIGRAM, ONCE A DAY
     Route: 048
     Dates: start: 20250602
  58. PREDNISONE [Concomitant]
     Active Substance: PREDNISONE
     Dosage: 2.5 MILLIGRAM, ONCE A DAY
     Route: 048
     Dates: start: 20250603, end: 20250615
  59. PREDNISONE [Concomitant]
     Active Substance: PREDNISONE
     Dosage: 100 MG/M2, CYCLICAL (C1D1, ON DAY 1 TO DAY 5 OF EACH 21 DAYS CYCLE)
     Route: 048
     Dates: start: 20250616
  60. SULFAMETHOXAZOLE\TRIMETHOPRIM [Concomitant]
     Active Substance: SULFAMETHOXAZOLE\TRIMETHOPRIM
     Indication: Infection prophylaxis
     Route: 048
     Dates: start: 2025
  61. ACYCLOVIR [Concomitant]
     Active Substance: ACYCLOVIR
     Indication: Infection prophylaxis
     Dosage: 800 MILLIGRAM, ONCE A DAY
     Route: 048
     Dates: start: 2025
  62. PANTOPRAZOLE [Concomitant]
     Active Substance: PANTOPRAZOLE
     Indication: Prophylaxis
     Dosage: 1 DOSAGE FORM, ONCE A DAY
     Route: 048
     Dates: start: 2025
  63. CALCIUM CARBONATE [Concomitant]
     Active Substance: CALCIUM CARBONATE
     Indication: Calcium deficiency
     Dosage: 1 DOSAGE FORM, ONCE A DAY
     Route: 048
     Dates: start: 2025
  64. RIVAROXABAN [Concomitant]
     Active Substance: RIVAROXABAN
     Indication: Thrombosis prophylaxis
     Dosage: 10 MILLIGRAM, ONCE A DAY
     Route: 048
     Dates: start: 2025, end: 20250529
  65. RIVAROXABAN [Concomitant]
     Active Substance: RIVAROXABAN
     Dosage: 10 MILLIGRAM, ONCE A DAY
     Route: 048
     Dates: start: 20250609, end: 20250617
  66. DEXAMETHASONE [Concomitant]
     Active Substance: DEXAMETHASONE
     Dosage: 20 MILLIGRAM, ONCE A DAY
     Route: 048
     Dates: start: 20250529, end: 20250601
  67. FOLIC ACID [Concomitant]
     Active Substance: FOLIC ACID
     Indication: Prophylaxis
     Dosage: 2.5 MILLIGRAM, ONCE A DAY
     Route: 048
     Dates: start: 20250604
  68. FOLIC ACID [Concomitant]
     Active Substance: FOLIC ACID
     Dosage: 5 MILLIGRAM, ONCE A DAY
     Route: 048
     Dates: start: 20250604
  69. VITAMIN B12 [Concomitant]
     Active Substance: CYANOCOBALAMIN
     Indication: Prophylaxis
     Route: 030
     Dates: start: 20250605, end: 20250605
  70. PRIMPERAN [Concomitant]
     Active Substance: METOCLOPRAMIDE HYDROCHLORIDE
     Indication: Prophylaxis of nausea and vomiting
     Route: 048
     Dates: start: 20250616
  71. ONDANSETRON [Concomitant]
     Active Substance: ONDANSETRON
     Indication: Nausea
     Route: 042
     Dates: start: 20250619, end: 20250620
  72. ONDANSETRON [Concomitant]
     Active Substance: ONDANSETRON
     Indication: Prophylaxis
     Dosage: 8 MILLIGRAM, 3 TIMES A DAY
     Route: 048
     Dates: start: 20250616, end: 20250619
  73. FILGRASTIM [Concomitant]
     Active Substance: FILGRASTIM
     Indication: Prophylaxis
     Dosage: 0.5 MILLILITER, ONCE A DAY
     Route: 058
     Dates: start: 20250618, end: 20250619
  74. FILGRASTIM [Concomitant]
     Active Substance: FILGRASTIM
     Dosage: 0.5 MILLILITER, ONCE A DAY
     Route: 058
     Dates: start: 20250621, end: 20250621
  75. FILGRASTIM [Concomitant]
     Active Substance: FILGRASTIM
     Dosage: 0.5 MILLILITER, ONCE A DAY
     Route: 058
     Dates: start: 20250707, end: 20250707
  76. FILGRASTIM [Concomitant]
     Active Substance: FILGRASTIM
     Route: 058
     Dates: start: 20250804, end: 20250808
  77. HIBOR [Concomitant]
     Indication: Thrombosis prophylaxis
     Dosage: 5000 INTERNATIONAL UNIT, ONCE A DAY
     Route: 058
     Dates: start: 20250530, end: 20250608
  78. ESCITALOPRAM OXALATE [Concomitant]
     Active Substance: ESCITALOPRAM OXALATE
     Indication: Antidepressant therapy
     Dosage: 20 MILLIGRAM, ONCE A DAY
     Route: 048
     Dates: start: 2025
  79. MESNA [Concomitant]
     Active Substance: MESNA
     Indication: Infection prophylaxis
     Route: 058
     Dates: start: 20250616, end: 20250616
  80. NYSTATIN [Concomitant]
     Active Substance: NYSTATIN
     Indication: Infection prophylaxis
     Route: 050
     Dates: start: 20250616
  81. AZITHROMYCIN DIHYDRATE [AZITHROMYCIN] [Concomitant]
     Indication: Infection prophylaxis
     Dosage: 250 MILLIGRAM, ONCE A DAY
     Route: 048
     Dates: start: 20250707
  82. FILGRASTIM [Concomitant]
     Active Substance: FILGRASTIM
     Dosage: 0.5 MILLIGRAM, ONCE A DAY
     Route: 058
     Dates: start: 20250623, end: 20250625
  83. FILGRASTIM [Concomitant]
     Active Substance: FILGRASTIM
     Dosage: 0.5 MILLIGRAM, ONCE A DAY
     Route: 058
     Dates: start: 20250718, end: 20250720

REACTIONS (6)
  - Neutropenia [Recovered/Resolved]
  - Pneumococcal bacteraemia [Recovered/Resolved]
  - Vomiting [Recovered/Resolved]
  - Nausea [Recovered/Resolved]
  - Pain in jaw [Recovered/Resolved]
  - Asthenia [Not Recovered/Not Resolved]

NARRATIVE: CASE EVENT DATE: 20250101
